FAERS Safety Report 14316095 (Version 1)
Quarter: 2017Q4

REPORT INFORMATION
  Report Type: Report from Study
  Country: None (occurrence: BR)
  Receive Date: 20171222
  Receipt Date: 20171222
  Transmission Date: 20180321
  Serious: Yes (Other)
  Sender: FDA-Public Use
  Company Number: BR-ABBVIE-17K-020-2200289-00

PATIENT
  Age: 51 Year
  Sex: Female
  Weight: 93 kg

DRUGS (7)
  1. REUQUINOL [Concomitant]
     Active Substance: HYDROXYCHLOROQUINE SULFATE
     Indication: ARTHRITIS
     Route: 048
     Dates: start: 201606
  2. PURAN [Concomitant]
     Active Substance: LEVOTHYROXINE SODIUM
     Indication: HYPOTHYROIDISM
  3. HUMIRA [Suspect]
     Active Substance: ADALIMUMAB
     Indication: RHEUMATOID ARTHRITIS
     Route: 058
     Dates: start: 20170405
  4. ALPRAZOLAN [Concomitant]
     Active Substance: ALPRAZOLAM
     Indication: ANXIETY
  5. VELIJA [Concomitant]
     Active Substance: DULOXETINE HYDROCHLORIDE
     Indication: ANXIETY
  6. ALPRAZOLAN [Concomitant]
     Active Substance: ALPRAZOLAM
     Indication: MALAISE
  7. FERROUS SULFATE. [Concomitant]
     Active Substance: FERROUS SULFATE
     Indication: ARTHRITIS

REACTIONS (7)
  - Asthenia [Not Recovered/Not Resolved]
  - Vitamin D deficiency [Recovering/Resolving]
  - Vomiting [Recovered/Resolved]
  - Viral infection [Unknown]
  - Uterine haemorrhage [Recovering/Resolving]
  - Diarrhoea [Recovered/Resolved]
  - Uterine enlargement [Recovering/Resolving]

NARRATIVE: CASE EVENT DATE: 201706
